FAERS Safety Report 24097709 (Version 2)
Quarter: 2024Q3

REPORT INFORMATION
  Report Type: Spontaneous
  Country: CN (occurrence: CN)
  Receive Date: 20240716
  Receipt Date: 20240725
  Transmission Date: 20241016
  Serious: Yes (Hospitalization, Other)
  Sender: GLAXOSMITHKLINE
  Company Number: CN-GLAXOSMITHKLINE-CN2024APC084149

PATIENT

DRUGS (2)
  1. SERETIDE [Suspect]
     Active Substance: FLUTICASONE PROPIONATE\SALMETEROL XINAFOATE
     Indication: Emphysema
     Dosage: 1 PUFF(S), QD,50/500UG 60 DOSES
     Route: 055
  2. SERETIDE [Suspect]
     Active Substance: FLUTICASONE PROPIONATE\SALMETEROL XINAFOATE
     Indication: Bronchitis chronic
     Dosage: 1 PUFF(S), BID
     Route: 055

REACTIONS (11)
  - Bronchitis [Unknown]
  - Condition aggravated [Unknown]
  - Emphysema [Unknown]
  - Papillary thyroid cancer [Not Recovered/Not Resolved]
  - Osteoporosis [Unknown]
  - Weight decreased [Unknown]
  - Discomfort [Recovered/Resolved]
  - Wrong technique in device usage process [Unknown]
  - Incorrect dose administered [Unknown]
  - Inappropriate schedule of product administration [Unknown]
  - Product use in unapproved indication [Unknown]

NARRATIVE: CASE EVENT DATE: 20240706
